FAERS Safety Report 4569135-7 (Version None)
Quarter: 2005Q1

REPORT INFORMATION
  Report Type: 
  Country: None (occurrence: None)
  Receive Date: 20050127
  Receipt Date: 20050114
  Transmission Date: 20050727
  Serious: Yes (Hospitalization)
  Sender: FDA-Public Use
  Company Number: 2005-00196

PATIENT
  Age: 60 Year
  Sex: Male

DRUGS (1)
  1. IMMUCYST (BCG - IT  (CONNAUGHT ) ), AVENTIS PASTEUR LTD., LOT NOT REP [Suspect]
     Indication: BLADDER CANCER
     Dosage: 81.0 MG

REACTIONS (2)
  - BLADDER CANCER RECURRENT [None]
  - BLADDER CONSTRICTION [None]
